FAERS Safety Report 5084457-1 (Version None)
Quarter: 2006Q3

REPORT INFORMATION
  Report Type: 
  Country: None (occurrence: None)
  Receive Date: 20060815
  Receipt Date: 20060731
  Transmission Date: 20061208
  Serious: Yes (Hospitalization)
  Sender: FDA-Public Use
  Company Number: 2006SP002859

PATIENT
  Age: 44 Year
  Sex: Female

DRUGS (5)
  1. LUNESTA [Suspect]
     Dosage: ORAL
     Route: 048
     Dates: end: 20060727
  2. TOPAMAX [Suspect]
     Dosage: 800 MG; UNKNOWN; ORAL
     Route: 048
  3. ALCOHOL [Suspect]
     Dosage: ORAL
     Route: 048
  4. EFFEXOR [Concomitant]
  5. LAMOTRIGINE [Concomitant]

REACTIONS (11)
  - ALANINE AMINOTRANSFERASE INCREASED [None]
  - ALCOHOLISM [None]
  - ASPARTATE AMINOTRANSFERASE INCREASED [None]
  - BIPOLAR II DISORDER [None]
  - DELIRIUM [None]
  - DEPRESSION [None]
  - MENTAL STATUS CHANGES [None]
  - MULTIPLE DRUG OVERDOSE [None]
  - SINUS TACHYCARDIA [None]
  - SOMNOLENCE [None]
  - WEIGHT INCREASED [None]
